FAERS Safety Report 11012374 (Version 1)
Quarter: 2015Q2

REPORT INFORMATION
  Report Type: Spontaneous
  Country: US (occurrence: None)
  Receive Date: 20150410
  Receipt Date: 20150410
  Transmission Date: 20150821
  Serious: Yes (Hospitalization)
  Sender: FDA-Public Use
  Company Number: None

PATIENT
  Age: 68 Year
  Sex: Male
  Weight: 83.8 kg

DRUGS (1)
  1. RITUXIMAB (MOAB C2B8 ANTI CD20, CHIMERIC) [Suspect]
     Active Substance: RITUXIMAB
     Dates: end: 20150402

REACTIONS (9)
  - Chills [None]
  - Vomiting [None]
  - Dyspnoea [None]
  - Tachycardia [None]
  - Pleural effusion [None]
  - Condition aggravated [None]
  - Pyrexia [None]
  - Wheezing [None]
  - Tachypnoea [None]

NARRATIVE: CASE EVENT DATE: 20150402
